FAERS Safety Report 24228584 (Version 1)
Quarter: 2024Q3

REPORT INFORMATION
  Report Type: Spontaneous
  Country: US (occurrence: US)
  Receive Date: 20240820
  Receipt Date: 20240820
  Transmission Date: 20241016
  Serious: No
  Sender: ABBVIE
  Company Number: US-ABBVIE-5886530

PATIENT

DRUGS (1)
  1. UBRELVY [Suspect]
     Active Substance: UBROGEPANT
     Indication: Product used for unknown indication
     Route: 048

REACTIONS (2)
  - Hypotension [Unknown]
  - Bradycardia [Unknown]

NARRATIVE: CASE EVENT DATE: 20240101
